FAERS Safety Report 13931960 (Version 2)
Quarter: 2019Q3

REPORT INFORMATION
  Report Type: Spontaneous
  Country: DE (occurrence: DE)
  Receive Date: 20170904
  Receipt Date: 20190906
  Transmission Date: 20191004
  Serious: Yes (Congenital Anomaly)
  Sender: FDA-Public Use
  Company Number: DE-TORRENT-00007013

PATIENT
  Age: 9 Month
  Sex: Male
  Weight: 3 kg

DRUGS (12)
  1. LEVETIRACETAM. [Suspect]
     Active Substance: LEVETIRACETAM
     Indication: EPILEPSY
     Dosage: 1000 [MG/D ]
     Route: 064
     Dates: start: 20160414, end: 20170122
  2. BALDRIAN DISPERT [Concomitant]
     Active Substance: VALERIAN
     Indication: SLEEP DISORDER
     Dosage: 45 MG MILLIGRAM(S) EVERY DAY
     Route: 064
  3. BEPANTHEN [Concomitant]
     Indication: NASAL DISCOMFORT
     Dosage: UNKNOWN
     Route: 064
  4. FEMIBION [Concomitant]
     Indication: PROPHYLAXIS OF NEURAL TUBE DEFECT
     Dosage: 0.8 [MG/D (BIS 0.4)]
     Route: 064
     Dates: start: 20160414, end: 20160706
  5. INIMUR MYKO [Concomitant]
     Indication: VULVOVAGINAL MYCOTIC INFECTION
     Dosage: UNKNOWN
     Route: 064
  6. OXYTOCIN. [Concomitant]
     Active Substance: OXYTOCIN
     Indication: LABOUR INDUCTION
     Dosage: UNKNOWN
     Route: 064
     Dates: start: 20170122, end: 20170122
  7. NYSTATIN. [Concomitant]
     Active Substance: NYSTATIN
     Indication: VULVOVAGINAL MYCOTIC INFECTION
     Dosage: UNKNOWN
     Route: 064
  8. WICK INHALER [Concomitant]
     Indication: NASOPHARYNGITIS
     Dosage: UNKNOWN
     Route: 064
     Dates: start: 20160609, end: 20160609
  9. EFEROX [Concomitant]
     Active Substance: LEVOTHYROXINE SODIUM
     Indication: HYPOTHYROIDISM
     Dosage: 112 [G/D]
     Route: 064
     Dates: start: 20160414, end: 20170122
  10. VITAMIN D NOS [Concomitant]
     Active Substance: VITAMIN D NOS
     Indication: VITAMIN D DEFICIENCY
     Dosage: 1000 [IE/D]
     Route: 064
  11. SERTRALINE [Suspect]
     Active Substance: SERTRALINE HYDROCHLORIDE
     Indication: DEPRESSION
     Dosage: 50 MG MILLIGRAM(S) EVERY DAY
     Route: 064
     Dates: start: 20160414, end: 20170122
  12. FOLIC ACID. [Concomitant]
     Active Substance: FOLIC ACID
     Indication: PROPHYLAXIS OF NEURAL TUBE DEFECT
     Dosage: 0.8 MG, DAILY
     Route: 064
     Dates: start: 20160414, end: 20160706

REACTIONS (2)
  - Cerebral haemorrhage neonatal [Unknown]
  - Foetal exposure during pregnancy [Unknown]

NARRATIVE: CASE EVENT DATE: 201604
